FAERS Safety Report 21173353 (Version 1)
Quarter: 2022Q3

REPORT INFORMATION
  Report Type: Spontaneous
  Country: US (occurrence: None)
  Receive Date: 20220804
  Receipt Date: 20220804
  Transmission Date: 20221026
  Serious: Yes (Hospitalization, Disabling)
  Sender: FDA-Public Use
  Company Number: None

PATIENT
  Age: 36 Year
  Sex: Female
  Weight: 90 kg

DRUGS (1)
  1. DYSPORT [Suspect]
     Active Substance: ABOBOTULINUMTOXINA
     Indication: Skin cosmetic procedure

REACTIONS (7)
  - Hypoaesthesia [None]
  - Paraesthesia [None]
  - Depersonalisation/derealisation disorder [None]
  - Panic disorder [None]
  - Anxiety disorder [None]
  - Postural orthostatic tachycardia syndrome [None]
  - Loss of employment [None]

NARRATIVE: CASE EVENT DATE: 20220426
